FAERS Safety Report 10263305 (Version 2)
Quarter: 2014Q2

REPORT INFORMATION
  Report Type: Report from Study
  Country: US (occurrence: US)
  Receive Date: 20140626
  Receipt Date: 20140626
  Transmission Date: 20141212
  Serious: Yes (Other)
  Sender: FDA-Public Use
  Company Number: US-MYLANLABS-2012S1023501

PATIENT
  Age: 77 Year
  Sex: Female
  Weight: 54.89 kg

DRUGS (4)
  1. CLOZAPINE TABLETS [Suspect]
     Indication: PSYCHOTIC DISORDER
     Route: 048
     Dates: start: 20100505, end: 20130624
  2. CLOZAPINE TABLETS [Suspect]
     Indication: SCHIZOPHRENIA
     Route: 048
     Dates: start: 20100505, end: 20130624
  3. COGENTIN [Concomitant]
  4. PROLIXIN DECANOATE [Concomitant]
     Route: 030

REACTIONS (2)
  - Leukopenia [Recovered/Resolved]
  - Granulocytopenia [Not Recovered/Not Resolved]
